FAERS Safety Report 8608757-0 (Version None)
Quarter: 2012Q3

REPORT INFORMATION
  Report Type: 
  Country: None (occurrence: None)
  Receive Date: 20120821
  Receipt Date: 20120806
  Transmission Date: 20120928
  Serious: Yes (Other)
  Sender: FDA-Public Use
  Company Number: ES-ARROW-2012-14292

PATIENT
  Age: 66 Year
  Sex: Male

DRUGS (3)
  1. ACYCLOVIR [Suspect]
     Dosage: 400 MG, BID
     Route: 042
  2. VALACYCLOVIR HYDROCHLORIDE [Suspect]
     Indication: HERPES ZOSTER
     Dosage: 500 MG, BID
     Route: 048
  3. ACYCLOVIR [Suspect]
     Indication: HERPES ZOSTER
     Dosage: 200 MG, DAILY
     Route: 065

REACTIONS (3)
  - DYSARTHRIA [None]
  - NEUROTOXICITY [None]
  - DEPRESSED LEVEL OF CONSCIOUSNESS [None]
